FAERS Safety Report 7944889-8 (Version None)
Quarter: 2011Q4

REPORT INFORMATION
  Report Type: 
  Country: None (occurrence: None)
  Receive Date: 20111129
  Receipt Date: 20111118
  Transmission Date: 20120403
  Serious: Yes (Other)
  Sender: FDA-Public Use
  Company Number: JP-JNJFOC-20111006214

PATIENT
  Age: 5 Decade
  Sex: Male

DRUGS (1)
  1. REMICADE [Suspect]
     Indication: CROHN'S DISEASE
     Dosage: TOTAL OF 3 INFLIXIMAB INFUSIONS
     Route: 042

REACTIONS (3)
  - ALOPECIA [None]
  - CROHN'S DISEASE [None]
  - PSORIASIS [None]
